FAERS Safety Report 9689580 (Version 1)
Quarter: 2013Q4

REPORT INFORMATION
  Report Type: Spontaneous
  Country: US (occurrence: US)
  Receive Date: 20131115
  Receipt Date: 20131115
  Transmission Date: 20140711
  Serious: Yes (Hospitalization)
  Sender: FDA-Public Use
  Company Number: US-JNJFOC-20131102822

PATIENT
  Age: 3 Year
  Sex: Female

DRUGS (2)
  1. TYLENOL INFANT UNSPECIFIED [Suspect]
     Route: 048
  2. TYLENOL INFANT UNSPECIFIED [Suspect]
     Indication: PRODUCT USED FOR UNKNOWN INDICATION
     Dosage: 4 OUNCES, A WHOLE BOTTLE ONCE
     Route: 048

REACTIONS (3)
  - Toxicity to various agents [Unknown]
  - Abdominal discomfort [Unknown]
  - Faeces discoloured [Unknown]
